FAERS Safety Report 9297153 (Version 1)
Quarter: 2013Q2

REPORT INFORMATION
  Report Type: Spontaneous
  Country: US (occurrence: US)
  Receive Date: 20130520
  Receipt Date: 20130520
  Transmission Date: 20140414
  Serious: No
  Sender: FDA-Public Use
  Company Number: US-009507513-1305USA010432

PATIENT
  Sex: Female

DRUGS (3)
  1. NASONEX [Suspect]
     Indication: SINUS CONGESTION
     Dosage: 100 MCG TWICE DAILY FOR AN UNSPECIFIED PERIOD
     Route: 045
     Dates: end: 201305
  2. NASONEX [Suspect]
     Indication: TINNITUS
  3. SODIUM CHLORIDE [Concomitant]
     Indication: SINUSITIS

REACTIONS (8)
  - Feeling abnormal [Unknown]
  - Asthenia [Unknown]
  - Weight decreased [Unknown]
  - Diarrhoea [Unknown]
  - Dysgeusia [Unknown]
  - Pruritus [Unknown]
  - Overdose [Unknown]
  - Product quality issue [Unknown]
